FAERS Safety Report 21270705 (Version 1)
Quarter: 2022Q3

REPORT INFORMATION
  Report Type: Report from Study
  Country: US (occurrence: None)
  Receive Date: 20220830
  Receipt Date: 20220830
  Transmission Date: 20221027
  Serious: Yes (Other)
  Sender: FDA-Public Use
  Company Number: US-Merck Healthcare KGaA-9347310

PATIENT
  Sex: Female

DRUGS (8)
  1. MAVENCLAD [Suspect]
     Active Substance: CLADRIBINE
     Indication: Multiple sclerosis
     Dosage: YEAR ONE THERAPY.
     Route: 048
     Dates: start: 20210604
  2. MAVENCLAD [Suspect]
     Active Substance: CLADRIBINE
     Dosage: YEAR TWO THERAPY
     Route: 048
     Dates: end: 20210705
  3. PROZAC [Concomitant]
     Active Substance: FLUOXETINE HYDROCHLORIDE
     Indication: Depression
  4. PROZAC [Concomitant]
     Active Substance: FLUOXETINE HYDROCHLORIDE
     Indication: Anxiety
  5. BACLOFEN [Concomitant]
     Active Substance: BACLOFEN
     Indication: Back pain
  6. BACLOFEN [Concomitant]
     Active Substance: BACLOFEN
     Indication: Joint range of motion decreased
  7. MOBIC [Concomitant]
     Active Substance: MELOXICAM
     Indication: Back pain
  8. MOBIC [Concomitant]
     Active Substance: MELOXICAM
     Indication: Joint range of motion decreased

REACTIONS (2)
  - Rheumatoid arthritis [Unknown]
  - Breast mass [Unknown]
